FAERS Safety Report 20910659 (Version 1)
Quarter: 2022Q2

REPORT INFORMATION
  Report Type: Other
  Country: NP (occurrence: None)
  Receive Date: 20220603
  Receipt Date: 20220603
  Transmission Date: 20220720
  Serious: Yes (Hospitalization, Other)
  Sender: FDA-Public Use
  Company Number: NP-ROCHE-3105891

PATIENT
  Age: 31 Year
  Sex: Male

DRUGS (7)
  1. MYCOPHENOLATE MOFETIL [Suspect]
     Active Substance: MYCOPHENOLATE MOFETIL
     Indication: Prophylaxis against transplant rejection
     Route: 065
  2. TACROLIMUS [Suspect]
     Active Substance: TACROLIMUS
     Indication: Prophylaxis against transplant rejection
     Dosage: IN MORNING
     Route: 065
  3. TACROLIMUS [Suspect]
     Active Substance: TACROLIMUS
     Dosage: IN EVENING
     Route: 065
  4. PREDNISOLONE [Suspect]
     Active Substance: PREDNISOLONE
     Indication: Prophylaxis against transplant rejection
     Route: 065
  5. GLICLAZIDE [Concomitant]
     Active Substance: GLICLAZIDE
  6. METFORMIN [Concomitant]
     Active Substance: METFORMIN HYDROCHLORIDE
  7. AMLODIPINE [Concomitant]
     Active Substance: AMLODIPINE BESYLATE

REACTIONS (4)
  - Encephalitis [Unknown]
  - Pneumonia [Unknown]
  - Cerebral haemorrhage [Unknown]
  - Generalised tonic-clonic seizure [Unknown]
